FAERS Safety Report 6444963-1 (Version None)
Quarter: 2009Q4

REPORT INFORMATION
  Report Type: 
  Country: None (occurrence: None)
  Receive Date: 20091118
  Receipt Date: 20091109
  Transmission Date: 20100525
  Serious: Yes (Other)
  Sender: FDA-Public Use
  Company Number: US-PFIZER INC-2009263325

PATIENT
  Sex: Female
  Weight: 61.678 kg

DRUGS (3)
  1. PROVERA [Suspect]
     Indication: HORMONE REPLACEMENT THERAPY
     Dosage: 10 MG, UNK
     Route: 048
     Dates: start: 19940127, end: 19980501
  2. CYCRIN [Suspect]
     Indication: HORMONE REPLACEMENT THERAPY
     Dosage: 10 MG, UNK
     Dates: start: 19940127, end: 19980501
  3. PREMARIN [Suspect]
     Indication: HORMONE REPLACEMENT THERAPY
     Dosage: 9 MG, UNK
     Dates: start: 19940414, end: 19980501

REACTIONS (1)
  - BREAST CANCER [None]
